FAERS Safety Report 8573336-0 (Version None)
Quarter: 2012Q2

REPORT INFORMATION
  Report Type: 
  Country: None (occurrence: None)
  Receive Date: 20120423
  Receipt Date: 20090716
  Transmission Date: 20120825
  Serious: Yes (Other)
  Sender: FDA-Public Use
  Company Number: PHEH2009US07285

PATIENT
  Sex: Male

DRUGS (2)
  1. EXJADE [Suspect]
     Dosage: 500 MG, TID, ORAL
     Route: 048
  2. TRANSFUSIONS (NO INGREDIENTS/SUBSTANCES) [Concomitant]

REACTIONS (3)
  - THROMBOCYTOPENIA [None]
  - RASH PRURITIC [None]
  - RASH PAPULAR [None]
